FAERS Safety Report 7832895-3 (Version None)
Quarter: 2011Q4

REPORT INFORMATION
  Report Type: 
  Country: None (occurrence: None)
  Receive Date: 20111019
  Receipt Date: 20111010
  Transmission Date: 20120403
  Serious: Yes (Other)
  Sender: FDA-Public Use
  Company Number: 2011-01157

PATIENT
  Age: 51 Year
  Sex: Female

DRUGS (2)
  1. BUDESONIDE [Concomitant]
  2. LISINOPRIL [Suspect]
     Indication: HYPERTENSION
     Dosage: (2.5 MG, UNK),ORAL
     Route: 048
     Dates: start: 20110917, end: 20110921

REACTIONS (2)
  - MENTAL IMPAIRMENT [None]
  - SUICIDAL IDEATION [None]
